FAERS Safety Report 12098592 (Version 4)
Quarter: 2016Q3

REPORT INFORMATION
  Report Type: Report from Study
  Country: CA (occurrence: CA)
  Receive Date: 20160222
  Receipt Date: 20160728
  Transmission Date: 20161109
  Serious: Yes (Other)
  Sender: FDA-Public Use
  Company Number: CA-ROCHE-1706710

PATIENT
  Age: 71 Year
  Sex: Male

DRUGS (15)
  1. ESBRIET [Suspect]
     Active Substance: PIRFENIDONE
     Route: 048
     Dates: start: 20160126
  2. IRBESARTAN. [Concomitant]
     Active Substance: IRBESARTAN
  3. PRADAXA [Concomitant]
     Active Substance: DABIGATRAN ETEXILATE MESYLATE
  4. ESBRIET [Suspect]
     Active Substance: PIRFENIDONE
     Dosage: 7 PILLS/DAY 534-534-801MG
     Route: 048
     Dates: start: 201602, end: 2016
  5. MIRTAZAPINE. [Suspect]
     Active Substance: MIRTAZAPINE
     Dosage: 15MG ON SATURDAY NIGHT
     Route: 065
  6. FUROSEMIDE. [Concomitant]
     Active Substance: FUROSEMIDE
  7. TERAZOSINE [Concomitant]
  8. SENOKOT [Concomitant]
     Active Substance: SENNOSIDES
  9. ESBRIET [Suspect]
     Active Substance: PIRFENIDONE
     Route: 048
     Dates: start: 20160204
  10. AMLODIPINE [Concomitant]
     Active Substance: AMLODIPINE BESYLATE
  11. ATORVASTATIN [Concomitant]
     Active Substance: ATORVASTATIN
  12. DUTASTERIDE. [Concomitant]
     Active Substance: DUTASTERIDE
  13. ESBRIET [Suspect]
     Active Substance: PIRFENIDONE
     Route: 048
     Dates: start: 20160202
  14. MIRTAZAPINE. [Suspect]
     Active Substance: MIRTAZAPINE
     Indication: PRODUCT USED FOR UNKNOWN INDICATION
     Dosage: 7.5MG AT BEDTIME FOR THURSDAY AND FRIDAY
     Route: 065
  15. ESBRIET [Suspect]
     Active Substance: PIRFENIDONE
     Indication: IDIOPATHIC PULMONARY FIBROSIS
     Route: 048
     Dates: start: 20160119

REACTIONS (15)
  - Balance disorder [Not Recovered/Not Resolved]
  - Anxiety [Not Recovered/Not Resolved]
  - Asthenia [Not Recovered/Not Resolved]
  - Asthenia [Unknown]
  - Back pain [Not Recovered/Not Resolved]
  - Depression [Not Recovered/Not Resolved]
  - Nasopharyngitis [Recovering/Resolving]
  - Constipation [Not Recovered/Not Resolved]
  - Dysarthria [Recovering/Resolving]
  - Dizziness [Unknown]
  - Swollen tongue [Recovering/Resolving]
  - Malaise [Unknown]
  - Productive cough [Not Recovered/Not Resolved]
  - Confusional state [Not Recovered/Not Resolved]
  - Mouth haemorrhage [Unknown]

NARRATIVE: CASE EVENT DATE: 201602
